FAERS Safety Report 16151879 (Version 6)
Quarter: 2021Q4

REPORT INFORMATION
  Report Type: Other
  Country: US (occurrence: None)
  Receive Date: 20190403
  Receipt Date: 20211101
  Transmission Date: 20220303
  Serious: Yes (Other)
  Sender: FDA-Public Use
  Company Number: US-ROCHE-2031877

PATIENT
  Sex: Female
  Weight: 63.32 kg

DRUGS (14)
  1. CELLCEPT [Suspect]
     Active Substance: MYCOPHENOLATE MOFETIL\MYCOPHENOLATE MOFETIL HYDROCHLORIDE
     Indication: Haemolytic anaemia
     Route: 048
  2. CELLCEPT [Suspect]
     Active Substance: MYCOPHENOLATE MOFETIL\MYCOPHENOLATE MOFETIL HYDROCHLORIDE
     Indication: Lupus nephritis
     Dosage: 500MG 2 IN AM 2 IN PM
     Route: 048
  3. CELLCEPT [Suspect]
     Active Substance: MYCOPHENOLATE MOFETIL\MYCOPHENOLATE MOFETIL HYDROCHLORIDE
     Indication: Chronic kidney disease
  4. CELLCEPT [Suspect]
     Active Substance: MYCOPHENOLATE MOFETIL\MYCOPHENOLATE MOFETIL HYDROCHLORIDE
     Indication: Lupus nephritis
  5. AFLURIA NOS [Concomitant]
     Active Substance: INFLUENZA VIRUS VACCINE TRIVALENT TYPE A+B AFLURIA
     Route: 030
  6. ASPIRIN [Concomitant]
     Active Substance: ASPIRIN
     Route: 048
  7. BRIVARACETAM [Concomitant]
     Active Substance: BRIVARACETAM
     Route: 048
  8. CALCIUM [Concomitant]
     Active Substance: CALCIUM
     Route: 048
  9. DEBROX (UNITED STATES) [Concomitant]
  10. ERGOCALCIFEROL [Concomitant]
     Active Substance: ERGOCALCIFEROL
     Route: 048
  11. KEPPRA [Concomitant]
     Active Substance: LEVETIRACETAM
     Route: 048
  12. METOPROLOL SUCCINATE [Concomitant]
     Active Substance: METOPROLOL SUCCINATE
     Route: 048
  13. TORSEMIDE [Concomitant]
     Active Substance: TORSEMIDE
     Route: 048
  14. VIMPAT [Concomitant]
     Active Substance: LACOSAMIDE

REACTIONS (16)
  - Cerebrovascular accident [Unknown]
  - Disability [Unknown]
  - Seizure [Unknown]
  - Renal failure [Unknown]
  - Diarrhoea [Recovered/Resolved]
  - Oedema [Unknown]
  - Crepitations [Unknown]
  - Proteinuria [Unknown]
  - Overweight [Unknown]
  - Memory impairment [Unknown]
  - Muscular weakness [Unknown]
  - Arthralgia [Unknown]
  - Visual impairment [Unknown]
  - Hypoaesthesia [Unknown]
  - Off label use [Unknown]
  - Medication error [Unknown]
